FAERS Safety Report 8273764-7 (Version None)
Quarter: 2012Q2

REPORT INFORMATION
  Report Type: 
  Country: None (occurrence: None)
  Receive Date: 20120411
  Receipt Date: 20120402
  Transmission Date: 20120825
  Serious: Yes (Hospitalization)
  Sender: FDA-Public Use
  Company Number: FR-ASTRAZENECA-2012SE22398

PATIENT
  Age: 67 Year
  Sex: Female

DRUGS (10)
  1. AMOXICILLIN [Concomitant]
     Indication: BRONCHITIS
     Route: 048
     Dates: start: 20120214, end: 20120219
  2. RINOTROPHYL [Concomitant]
     Indication: BRONCHITIS
     Route: 045
     Dates: start: 20120214, end: 20120219
  3. SYMBICORT [Suspect]
     Indication: BRONCHITIS
     Dosage: 160/4.5 MICROGRAM PER DOSE, TWO INHALATIONS PER DAY
     Route: 055
     Dates: start: 20120220, end: 20120301
  4. PREDNISOLONE MYLAN [Concomitant]
     Indication: BRONCHITIS
     Route: 048
     Dates: start: 20120220, end: 20120227
  5. LEVOTHYROXINE SODIUM [Concomitant]
     Indication: HYPOTHYROIDISM
     Dosage: 75 UG ONE DAY
     Route: 048
  6. LEVOTHYROXINE SODIUM [Concomitant]
     Dosage: 100 UG EVERY OTHER DAY
     Route: 048
  7. ACETAMINOPHEN [Concomitant]
     Indication: BRONCHITIS
     Route: 048
     Dates: start: 20120214
  8. PNEUMOREL [Concomitant]
     Indication: BRONCHITIS
     Route: 048
     Dates: start: 20120214, end: 20120219
  9. PYOSTACINE [Suspect]
     Indication: BRONCHITIS
     Route: 048
     Dates: start: 20120220, end: 20120227
  10. MUXOL [Suspect]
     Indication: BRONCHITIS
     Route: 048
     Dates: start: 20120220, end: 20120227

REACTIONS (5)
  - TONGUE OEDEMA [None]
  - LIP OEDEMA [None]
  - DYSPNOEA [None]
  - URTICARIA [None]
  - PRURITUS [None]
